FAERS Safety Report 7859320-0 (Version None)
Quarter: 2011Q4

REPORT INFORMATION
  Report Type: 
  Country: None (occurrence: None)
  Receive Date: 20111027
  Receipt Date: 20111019
  Transmission Date: 20120403
  Serious: Yes (Hospitalization, Other)
  Sender: FDA-Public Use
  Company Number: US-ASTELLAS-2011US006868

PATIENT
  Age: 53 Year
  Sex: Female
  Weight: 69 kg

DRUGS (25)
  1. ERLOTINIB HYDROCHLORIDE [Suspect]
     Dosage: UNK MG, UID/QD
     Route: 048
     Dates: start: 20111010
  2. LORTAB [Suspect]
     Indication: PRODUCT USED FOR UNKNOWN INDICATION
     Dosage: UNK
     Route: 065
  3. ANTIBIOTICS [Suspect]
     Indication: PRODUCT USED FOR UNKNOWN INDICATION
     Dosage: UNK
     Route: 065
  4. BENADRYL [Concomitant]
     Indication: PRODUCT USED FOR UNKNOWN INDICATION
     Dosage: 1 DF, PRN
     Route: 048
     Dates: start: 20101108
  5. MAGNESIUM OXIDE [Concomitant]
     Indication: BLOOD MAGNESIUM DECREASED
     Dosage: 1 DF, TID
     Route: 048
     Dates: start: 20110711
  6. SUDAFED 12 HOUR [Concomitant]
     Indication: HYPERSENSITIVITY
     Dosage: 1 DF, PRN
     Route: 048
     Dates: start: 20100730
  7. ZOFRAN [Concomitant]
     Indication: VOMITING
  8. PROCHLORPERAZINE [Concomitant]
     Indication: VOMITING
  9. SENNA S [Concomitant]
     Indication: PRODUCT USED FOR UNKNOWN INDICATION
     Dosage: 1 DF, QHS
     Route: 048
     Dates: start: 20110114
  10. ZOFRAN [Concomitant]
     Indication: NAUSEA
     Dosage: 8 MG, PRN
     Route: 048
     Dates: start: 20101223
  11. ERLOTINIB HYDROCHLORIDE [Suspect]
     Indication: NON-SMALL CELL LUNG CANCER
     Dosage: UNK
     Route: 048
     Dates: start: 20090710, end: 20111007
  12. DEXAMETHASONE [Concomitant]
     Indication: PRODUCT USED FOR UNKNOWN INDICATION
     Dosage: 4 MG, BID
     Route: 048
     Dates: start: 20101223, end: 20110924
  13. MULTI-VITAMIN [Concomitant]
     Indication: PRODUCT USED FOR UNKNOWN INDICATION
     Dosage: 1 MG, UID/QD
     Route: 048
     Dates: start: 20090122
  14. PROCHLORPERAZINE [Concomitant]
     Indication: NAUSEA
     Dosage: 10 MG, Q6 HOURS
     Route: 048
     Dates: start: 20101223, end: 20110901
  15. CARBOPLATIN [Concomitant]
     Indication: NON-SMALL CELL LUNG CANCER
     Dosage: UNK
     Route: 065
     Dates: end: 20110901
  16. ALEVE [Concomitant]
     Indication: PRODUCT USED FOR UNKNOWN INDICATION
     Dosage: 1 DF, BID
     Route: 048
     Dates: start: 20100702
  17. LEXAPRO [Concomitant]
     Indication: PRODUCT USED FOR UNKNOWN INDICATION
     Dosage: 20 MG, UID/QD
     Route: 048
     Dates: start: 20090122
  18. NEXIUM [Concomitant]
     Indication: DYSPEPSIA
     Dosage: 40 MG, UNKNOWN/D
     Route: 048
     Dates: start: 20081117
  19. ALIMTA [Concomitant]
     Indication: NON-SMALL CELL LUNG CANCER
     Dosage: UNK
     Route: 065
     Dates: end: 20110923
  20. AVASTIN [Concomitant]
     Indication: NON-SMALL CELL LUNG CANCER
     Dosage: UNK
     Route: 065
     Dates: end: 20110923
  21. IMODIUM MULTI-SYMPTOM RELIEF [Concomitant]
     Indication: PRODUCT USED FOR UNKNOWN INDICATION
     Dosage: 2 DF, PRN
     Route: 048
     Dates: start: 20090903
  22. VICODIN [Suspect]
     Indication: PAIN
     Dosage: 5/500 MG UNK
     Route: 048
     Dates: start: 20101210, end: 20111004
  23. EMERGEN-C [Concomitant]
     Indication: PRODUCT USED FOR UNKNOWN INDICATION
     Dosage: 1 DF, UID/QD
     Route: 048
     Dates: start: 20101108, end: 20110929
  24. EMLA [Concomitant]
     Indication: LOCAL ANAESTHESIA
     Dosage: UNK
     Route: 061
     Dates: start: 20110524, end: 20110923
  25. TUMS E-X [Concomitant]
     Indication: MINERAL SUPPLEMENTATION
     Dosage: 750 MG, BID
     Route: 048
     Dates: start: 20100311

REACTIONS (11)
  - FATIGUE [None]
  - ILEUS [None]
  - PLEURAL EFFUSION [None]
  - MUSCULOSKELETAL PAIN [None]
  - CONSTIPATION [None]
  - CARDIAC MURMUR [None]
  - ALANINE AMINOTRANSFERASE INCREASED [None]
  - PERICARDIAL EFFUSION [None]
  - ALOPECIA [None]
  - ASPARTATE AMINOTRANSFERASE INCREASED [None]
  - PULMONARY EMBOLISM [None]
